FAERS Safety Report 7667100-4 (Version None)
Quarter: 2011Q3

REPORT INFORMATION
  Report Type: 
  Country: None (occurrence: None)
  Receive Date: 20110806
  Receipt Date: 20110607
  Transmission Date: 20111222
  Serious: No
  Sender: FDA-Public Use
  Company Number: US-ABBOTT-11P-163-0730785-00

PATIENT
  Sex: Male
  Weight: 86.26 kg

DRUGS (5)
  1. ASPIRIN [Concomitant]
     Indication: PRODUCT USED FOR UNKNOWN INDICATION
  2. LIPITOR [Suspect]
     Indication: PRODUCT USED FOR UNKNOWN INDICATION
  3. NIASPAN [Suspect]
     Indication: LOW DENSITY LIPOPROTEIN INCREASED
  4. DICLOPHENAC [Concomitant]
     Indication: PRODUCT USED FOR UNKNOWN INDICATION
  5. NIASPAN [Suspect]
     Indication: HIGH DENSITY LIPOPROTEIN DECREASED
     Dosage: QHS
     Dates: start: 20070601

REACTIONS (2)
  - PAIN IN EXTREMITY [None]
  - FLUSHING [None]
